FAERS Safety Report 5207445-0 (Version None)
Quarter: 2007Q1

REPORT INFORMATION
  Report Type: 
  Country: None (occurrence: None)
  Receive Date: 20070112
  Receipt Date: 20070103
  Transmission Date: 20070707
  Serious: Yes (Hospitalization)
  Sender: FDA-Public Use
  Company Number: CH-ABBOTT-07P-151-0354844-00

PATIENT
  Age: 32 Year
  Sex: Male

DRUGS (1)
  1. KLACID ONE [Suspect]
     Indication: ODYNOPHAGIA
     Route: 048
     Dates: start: 20060704, end: 20060704

REACTIONS (6)
  - DYSPHONIA [None]
  - DYSPNOEA [None]
  - PHARYNGEAL OEDEMA [None]
  - PHARYNGOLARYNGEAL DISCOMFORT [None]
  - TYPE III IMMUNE COMPLEX MEDIATED REACTION [None]
  - WHEEZING [None]
